FAERS Safety Report 10034662 (Version 1)
Quarter: 2014Q1

REPORT INFORMATION
  Report Type: Spontaneous
  Country: MX (occurrence: None)
  Receive Date: 20140321
  Receipt Date: 20140321
  Transmission Date: 20141002
  Serious: Yes (Hospitalization)
  Sender: FDA-Public Use
  Company Number: FK201400858

PATIENT
  Age: 22 Year
  Sex: Male
  Weight: 69 kg

DRUGS (18)
  1. CLINDAMYCIN [Suspect]
     Indication: TONSILLITIS
  2. CLINDAMYCIN [Suspect]
     Indication: COUGH
  3. CLINDAMYCIN [Suspect]
     Indication: PYREXIA
  4. AMOXICILLIN [Concomitant]
  5. ACETAMINOPHEN [Concomitant]
  6. AMBROXOL [Concomitant]
  7. CLENBUTEROL [Concomitant]
  8. METRONIDAZOLE [Concomitant]
  9. MEROPENEM [Concomitant]
  10. AMIKACIN [Concomitant]
  11. FLUCONAZOLE [Concomitant]
  12. NYSTATIN [Concomitant]
  13. PARACETASMOL [Concomitant]
  14. KETOPROEN [Concomitant]
  15. BENZONATATE [Concomitant]
  16. IPRATROPIUM BROMIDE [Concomitant]
  17. BUDESONIDE [Concomitant]
  18. OMEPRAZOLE [Concomitant]

REACTIONS (6)
  - Pancytopenia [None]
  - Bone marrow failure [None]
  - Odynophagia [None]
  - Infusion site phlebitis [None]
  - Leukocytosis [None]
  - Neutrophilia [None]
